FAERS Safety Report 16731109 (Version 2)
Quarter: 2025Q3

REPORT INFORMATION
  Report Type: Spontaneous
  Country: EU (occurrence: EU)
  Receive Date: 20190822
  Receipt Date: 20250722
  Transmission Date: 20251021
  Serious: Yes (Other)
  Sender: AUROBINDO
  Company Number: EU-IPSEN GROUP, RESEARCH AND DEVELOPMENT-2019-04164

PATIENT

DRUGS (2)
  1. PAROXETINE [Interacting]
     Active Substance: PAROXETINE
     Indication: Product used for unknown indication
     Route: 065
  2. GINKGO [Interacting]
     Active Substance: GINKGO
     Indication: Product used for unknown indication
     Route: 048

REACTIONS (3)
  - Herbal interaction [Unknown]
  - Gastrointestinal haemorrhage [Unknown]
  - Respiratory tract haemorrhage [Unknown]
